FAERS Safety Report 6612286 (Version 1)
Quarter: 2020Q3

REPORT INFORMATION
  Report Type: Report from Study
  Country: US (occurrence: US)
  Receive Date: 20080411
  Receipt Date: 20080411
  Transmission Date: 20201105
  Serious: Yes (Other)
  Sender: FDA-Public Use
  Company Number: US-ROCHE-556368

PATIENT
  Age: 79 Year
  Sex: Female

DRUGS (7)
  1. BENTYL [Concomitant]
     Active Substance: DICYCLOMINE HYDROCHLORIDE
  2. UNSPECIFIED INGREDIENT [Concomitant]
     Active Substance: UNSPECIFIED INGREDIENT
     Dosage: DRUG: OTHER EYE LUBRICANTS (NOT NAMED)
  3. CALCIUM [Concomitant]
     Active Substance: CALCIUM
  4. RESTASIS [Concomitant]
     Active Substance: CYCLOSPORINE
  5. CENTRUM SILVER [Concomitant]
     Active Substance: MINERALS\VITAMINS
  6. CENTRUM SILVER [Concomitant]
     Active Substance: MINERALS\VITAMINS
  7. IBANDRONIC ACID. [Suspect]
     Active Substance: IBANDRONIC ACID
     Indication: OSTEOPENIA
     Route: 065

REACTIONS (1)
  - Back disorder [Not Recovered/Not Resolved]
